FAERS Safety Report 8053056-1 (Version None)
Quarter: 2012Q1

REPORT INFORMATION
  Report Type: 
  Country: None (occurrence: None)
  Receive Date: 20120111
  Receipt Date: 20111228
  Transmission Date: 20120608
  Serious: Yes (Other)
  Sender: FDA-Public Use
  Company Number: AUR-APL-2011-06314

PATIENT
  Age: 77 Year
  Sex: Female
  Weight: 112.9457 kg

DRUGS (6)
  1. LEVOTHYROXINE (LEVOTHYROXINE) ONGOING [Concomitant]
  2. SIMVASTATIN (SIMVASTATIN) ONGOING [Concomitant]
  3. ALENDRONIC ACID (ALENDORIC ACID) (ALENDRONIC ACID, ALENDRONIC ACID) [Suspect]
     Indication: PRODUCT USED FOR UNKNOWN INDICATION
     Dosage: (70 MG, 1 IN 1 WK), ORAL
     Route: 048
     Dates: start: 20111227
  4. AMLODIPINE (AMLODIPINE) ONGOING [Concomitant]
  5. ZEMPLAR (PARICALCITOL) ONGOING [Concomitant]
  6. LASIX (FUROSEMIDE) ONGOING [Concomitant]

REACTIONS (5)
  - GASTROINTESTINAL DISORDER [None]
  - FLATULENCE [None]
  - ABDOMINAL DISTENSION [None]
  - DYSGEUSIA [None]
  - ERUCTATION [None]
